FAERS Safety Report 7141755-5 (Version None)
Quarter: 2010Q4

REPORT INFORMATION
  Report Type: 
  Country: None (occurrence: None)
  Receive Date: 20101207
  Receipt Date: 20101126
  Transmission Date: 20110411
  Serious: Yes (Hospitalization, Other)
  Sender: FDA-Public Use
  Company Number: JP-NOVOPROD-318879

PATIENT
  Age: 48 Year
  Sex: Male
  Weight: 50 kg

DRUGS (7)
  1. VICTOZA [Suspect]
     Indication: TYPE 2 DIABETES MELLITUS
     Dosage: 0.3 MG, QD
     Route: 058
     Dates: start: 20100808
  2. VICTOZA [Suspect]
     Dosage: 0.6 MG, QD
     Route: 058
     Dates: start: 20100814
  3. VICTOZA [Suspect]
     Dosage: 0.9 MG, QD
     Route: 058
     Dates: start: 20100909, end: 20101118
  4. GLYCYRON                           /00466401/ [Concomitant]
     Indication: HEPATITIS C
     Dosage: 6 TAB, QD
     Route: 048
     Dates: start: 19950101, end: 20101119
  5. ETIZOLAM [Concomitant]
     Indication: PANIC DISORDER
     Dosage: 1.5 MG, QD
     Route: 048
     Dates: start: 19950101, end: 20101125
  6. LENDORMIN [Concomitant]
     Dosage: UNK
  7. NAUZELIN [Concomitant]
     Dosage: UNK

REACTIONS (11)
  - ABDOMINAL PAIN [None]
  - ALANINE AMINOTRANSFERASE INCREASED [None]
  - ASPARTATE AMINOTRANSFERASE INCREASED [None]
  - DECREASED APPETITE [None]
  - GAMMA-GLUTAMYLTRANSFERASE INCREASED [None]
  - GASTROINTESTINAL HYPOMOTILITY [None]
  - LIPASE INCREASED [None]
  - LIVER FUNCTION TEST ABNORMAL [None]
  - MALAISE [None]
  - NAUSEA [None]
  - WEIGHT DECREASED [None]
